FAERS Safety Report 5570971-9 (Version None)
Quarter: 2007Q4

REPORT INFORMATION
  Report Type: 
  Country: None (occurrence: None)
  Receive Date: 20071221
  Receipt Date: 20071219
  Transmission Date: 20080405
  Serious: Yes (Hospitalization)
  Sender: FDA-Public Use
  Company Number: FR-BRISTOL-MYERS SQUIBB COMPANY-14020697

PATIENT
  Age: 18 Day
  Sex: Female

DRUGS (11)
  1. PERFALGAN IV [Suspect]
     Route: 042
     Dates: start: 20071027
  2. AMIKACIN SULFATE [Suspect]
     Route: 042
     Dates: start: 20071106, end: 20071108
  3. CAFFEINE CITRATE [Suspect]
     Dosage: THERAPY DATES: 24-OCT-2007 TO 28-OCT-2007.
     Route: 042
     Dates: start: 20071105, end: 20071120
  4. FENTANYL [Suspect]
     Route: 042
     Dates: start: 20071105, end: 20071120
  5. L-THYROXINE [Suspect]
     Dosage: 96%.
     Dates: start: 20071031
  6. VANCOMYCIN [Suspect]
     Route: 042
     Dates: start: 20071106
  7. FLIXOTIDE [Suspect]
     Route: 055
     Dates: start: 20071024
  8. VENTOLIN [Suspect]
     Dates: start: 20071024
  9. PIPERACILLIN [Suspect]
     Route: 042
     Dates: start: 20071106, end: 20071109
  10. CLAMOXYL [Suspect]
     Route: 042
     Dates: start: 20071025, end: 20071104
  11. CLAFORAN [Suspect]
     Route: 042
     Dates: start: 20071025, end: 20071104

REACTIONS (2)
  - PULMONARY HYPERTENSION [None]
  - THROMBOCYTOPENIA [None]
